FAERS Safety Report 9088543 (Version 1)
Quarter: 2013Q1

REPORT INFORMATION
  Report Type: Report from Study
  Country: US (occurrence: US)
  Receive Date: 20130130
  Receipt Date: 20130130
  Transmission Date: 20140127
  Serious: Yes (Hospitalization)
  Sender: FDA-Public Use
  Company Number: US-ABBOTT-12P-163-0976001-00

PATIENT
  Age: 55 Year
  Sex: Female

DRUGS (2)
  1. HUMIRA PEN [Suspect]
     Indication: PSORIASIS
     Route: 058
     Dates: start: 201203
  2. HUMIRA PEN [Suspect]
     Route: 058
     Dates: start: 20120828

REACTIONS (3)
  - Back pain [Unknown]
  - Oral herpes [Unknown]
  - Fatigue [Unknown]
